FAERS Safety Report 5205960-7 (Version None)
Quarter: 2007Q1

REPORT INFORMATION
  Report Type: 
  Country: None (occurrence: None)
  Receive Date: 20070111
  Receipt Date: 20070108
  Transmission Date: 20070707
  Serious: Yes (Other)
  Sender: FDA-Public Use
  Company Number: US-BRISTOL-MYERS SQUIBB COMPANY-13362645

PATIENT
  Age: 64 Year
  Sex: Female
  Weight: 91 kg

DRUGS (8)
  1. ESTRADIOL [Suspect]
     Indication: HORMONE REPLACEMENT THERAPY
  2. MEDROXYPROGESTERONE [Suspect]
     Indication: HORMONE REPLACEMENT THERAPY
  3. ALBUTEROL [Concomitant]
     Indication: ASTHMA
     Dosage: 2 PUFFS FOUR TIMES DAILY AS NEEDED.
     Route: 055
  4. ZESTORETIC [Concomitant]
  5. ASPIRIN [Concomitant]
  6. VITAMIN CAP [Concomitant]
  7. CALCIUM [Concomitant]
  8. EPINEPHRINE [Concomitant]

REACTIONS (2)
  - BREAST CANCER [None]
  - BREAST CANCER STAGE I [None]
